FAERS Safety Report 7616041 (Version 3)
Quarter: 2013Q2

REPORT INFORMATION
  Report Type: Spontaneous
  Country: US (occurrence: US)
  Receive Date: 20101004
  Receipt Date: 20130507
  Transmission Date: 20140414
  Serious: Yes (Other)
  Sender: FDA-Public Use
  Company Number: US-ROCHE-712590

PATIENT
  Age: 15 Year
  Sex: Male
  Weight: 68.5 kg

DRUGS (2)
  1. ACCUTANE [Suspect]
     Indication: ACNE
     Route: 065
     Dates: start: 19980605, end: 199911
  2. PREDNISONE [Concomitant]
     Indication: CROHN^S DISEASE

REACTIONS (14)
  - Inflammatory bowel disease [Unknown]
  - Crohn^s disease [Not Recovered/Not Resolved]
  - Small intestinal obstruction [Recovered/Resolved]
  - Anxiety [Unknown]
  - Anaemia [Recovering/Resolving]
  - Weight decreased [Recovering/Resolving]
  - Decreased appetite [Unknown]
  - Insomnia [Unknown]
  - Dermatitis [Unknown]
  - Erythema [Unknown]
  - Acquired hydrocele [Not Recovered/Not Resolved]
  - Blood cholesterol increased [Unknown]
  - Platelet count increased [Recovering/Resolving]
  - Eosinophil count increased [Recovering/Resolving]
